FAERS Safety Report 14019742 (Version 4)
Quarter: 2018Q1

REPORT INFORMATION
  Report Type: Spontaneous
  Country: BR (occurrence: BR)
  Receive Date: 20170928
  Receipt Date: 20180221
  Transmission Date: 20180508
  Serious: Yes (Other)
  Sender: FDA-Public Use
  Company Number: BR-009507513-1707BRA003697

PATIENT
  Age: 39 Year
  Sex: Male

DRUGS (8)
  1. FENTANYL. [Concomitant]
     Active Substance: FENTANYL
     Indication: GENERAL ANAESTHESIA
     Dosage: STRENGTH: 50MCG/ML;350 MICROGRAM, ONCE
     Route: 042
     Dates: start: 20170705, end: 20170705
  2. ESMERON [Suspect]
     Active Substance: ROCURONIUM BROMIDE
     Indication: NEUROMUSCULAR BLOCKING THERAPY
     Dosage: STRENGHT 100MG/ML; 50 MG, ONCE
     Dates: start: 20170705, end: 20170705
  3. ESMERON [Suspect]
     Active Substance: ROCURONIUM BROMIDE
     Dosage: STRENGHT 100MG/ML; 30 MG, ONCE
     Dates: start: 20170705, end: 20170705
  4. PROPOFOL. [Concomitant]
     Active Substance: PROPOFOL
     Indication: GENERAL ANAESTHESIA
     Dosage: STRENGTH: 20MG/ML; 200 MG ONCE
     Route: 042
     Dates: start: 20170705, end: 20170705
  5. ELECTROLYTES (UNSPECIFIED) (+) SODIUM LACTATE [Concomitant]
     Active Substance: ELECTROLYTES NOS\SODIUM LACTATE
     Indication: FLUID REPLACEMENT
     Dosage: 1000 ML, QD
     Dates: start: 20170705, end: 20170705
  6. LIDOCAINE. [Concomitant]
     Active Substance: LIDOCAINE
     Indication: ANAESTHESIA
     Dosage: 80 MG, ONCE
     Route: 042
     Dates: start: 20170705, end: 20170705
  7. CEFAZOLIN [Concomitant]
     Active Substance: CEFAZOLIN
     Indication: PROPHYLAXIS
     Dosage: 2 G, ONCE
     Route: 042
     Dates: start: 20170705, end: 20170705
  8. DEXAMETHASONE. [Concomitant]
     Active Substance: DEXAMETHASONE
     Dosage: STRENGHT: 4MG/ML, 10 MG, ONCE
     Route: 042
     Dates: start: 20170705, end: 20170705

REACTIONS (3)
  - Drug ineffective [Unknown]
  - Endotracheal intubation complication [Unknown]
  - Off label use [Unknown]

NARRATIVE: CASE EVENT DATE: 20170705
